FAERS Safety Report 25902963 (Version 1)
Quarter: 2025Q4

REPORT INFORMATION
  Report Type: Spontaneous
  Country: EU (occurrence: EU)
  Receive Date: 20251009
  Receipt Date: 20251009
  Transmission Date: 20260117
  Serious: Yes (Other)
  Sender: TAKEDA
  Company Number: EU-PEI-202500021032

PATIENT
  Age: 37 Year
  Sex: Female

DRUGS (2)
  1. ALBUMIN HUMAN [Suspect]
     Active Substance: ALBUMIN HUMAN
     Indication: Plasmapheresis
     Dosage: 1 DOSAGE FORM
     Dates: start: 20250826, end: 20250826
  2. ALBUMIN HUMAN [Suspect]
     Active Substance: ALBUMIN HUMAN
     Dosage: 1 DOSAGE FORM
     Dates: start: 20250826, end: 20250826

REACTIONS (5)
  - Rash [Unknown]
  - Pruritus [Unknown]
  - Dysarthria [Unknown]
  - Pyrexia [Unknown]
  - Hypotension [Unknown]

NARRATIVE: CASE EVENT DATE: 20250827
